FAERS Safety Report 16407701 (Version 1)
Quarter: 2019Q2

REPORT INFORMATION
  Report Type: Spontaneous
  Country: ES (occurrence: ES)
  Receive Date: 20190609
  Receipt Date: 20190609
  Transmission Date: 20190711
  Serious: Yes (Other)
  Sender: FDA-Public Use
  Company Number: PHHY2019ES128325

PATIENT
  Age: 40 Year
  Sex: Female
  Weight: 65 kg

DRUGS (9)
  1. LOPERAMIDE [Concomitant]
     Active Substance: LOPERAMIDE
     Indication: SHORT-BOWEL SYNDROME
     Dosage: 1 DF, Q6H
     Route: 065
  2. ONDANSETRON [Concomitant]
     Active Substance: ONDANSETRON
     Indication: SHORT-BOWEL SYNDROME
     Dosage: 4 MG, PRN
     Route: 065
  3. CHOLESTYRAMINE. [Concomitant]
     Active Substance: CHOLESTYRAMINE
     Indication: SHORT-BOWEL SYNDROME
     Dosage: 4 G, QD
     Route: 065
  4. PHYTOMENADIONE [Concomitant]
     Active Substance: PHYTONADIONE
     Indication: SHORT-BOWEL SYNDROME
     Dosage: 10 G, Q8H
     Route: 042
  5. SODIUM BICARBONATE. [Concomitant]
     Active Substance: SODIUM BICARBONATE
     Indication: SHORT-BOWEL SYNDROME
     Dosage: 500 MG, Q8H
     Route: 065
  6. PARENTERAL NUTRITION (PN)+ ENTERAL NUTRITION (EN) [Concomitant]
     Indication: SHORT-BOWEL SYNDROME
     Dosage: REDUCED TO 3 DAYS/WEEK
     Route: 065
  7. MCT OIL [Concomitant]
     Indication: SHORT-BOWEL SYNDROME
     Dosage: UNK
     Route: 065
  8. OMEPRAZOL [Suspect]
     Active Substance: OMEPRAZOLE
     Indication: SHORT-BOWEL SYNDROME
     Dosage: 40 MG, Q12H
     Route: 048
  9. PLANTAGO OVATA [Concomitant]
     Active Substance: HERBALS\PLANTAGO OVATA LEAF
     Indication: SHORT-BOWEL SYNDROME
     Dosage: 4 G, Q8H
     Route: 065

REACTIONS (3)
  - Off label use [Unknown]
  - Jaundice [Unknown]
  - Septic shock [Unknown]
